FAERS Safety Report 14394471 (Version 4)
Quarter: 2018Q2

REPORT INFORMATION
  Report Type: Spontaneous
  Country: CA (occurrence: CA)
  Receive Date: 20180116
  Receipt Date: 20180525
  Transmission Date: 20180711
  Serious: Yes (Other)
  Sender: FDA-Public Use
  Company Number: CA-CELLTRION INC.-2017CA011235

PATIENT

DRUGS (13)
  1. INFLECTRA [Suspect]
     Active Substance: INFLIXIMAB-DYYB
     Dosage: 300 MG, THEN EVERY 6 WEEKS
     Route: 042
     Dates: start: 20180403
  2. M-ESLON [Concomitant]
     Active Substance: MORPHINE SULFATE
     Dosage: 10 MG PER TIME, UNK
     Route: 048
  3. INFLECTRA [Suspect]
     Active Substance: INFLIXIMAB-DYYB
     Indication: PSORIATIC ARTHROPATHY
     Dosage: 300 MG, CYCLIC (EVERY 0, 2,6 WEEKS, THEN EVERY 8WEEKS FOR 4 MONTHS
     Route: 042
     Dates: start: 20170110, end: 2017
  4. FOLIC ACID. [Concomitant]
     Active Substance: FOLIC ACID
     Dosage: UNK
  5. MOBICOX [Concomitant]
     Active Substance: MELOXICAM
  6. INFLECTRA [Suspect]
     Active Substance: INFLIXIMAB-DYYB
     Dosage: 300 MG, THEN EVERY 6 WEEKS
     Route: 042
     Dates: start: 2017
  7. INFLECTRA [Suspect]
     Active Substance: INFLIXIMAB-DYYB
     Dosage: 300 MG, THEN EVERY 6 WEEKS
     Route: 042
     Dates: start: 20171130
  8. INFLECTRA [Suspect]
     Active Substance: INFLIXIMAB-DYYB
     Dosage: 300 MG, THEN EVERY 6 WEEKS
     Route: 042
     Dates: start: 20180403
  9. AMOXICILLIN. [Concomitant]
     Active Substance: AMOXICILLIN
     Dosage: 500 MG, TID
  10. INFLECTRA [Suspect]
     Active Substance: INFLIXIMAB-DYYB
     Dosage: 300 MG, THEN EVERY 6 WEEKS
     Route: 042
     Dates: start: 20180109
  11. INFLECTRA [Suspect]
     Active Substance: INFLIXIMAB-DYYB
     Dosage: 300 MG, THEN EVERY 6 WEEKS
     Route: 042
     Dates: start: 20180220
  12. METHOTREXATE. [Concomitant]
     Active Substance: METHOTREXATE
     Dosage: 20 MG, WEEKLY
     Route: 058
  13. MELOXICAM. [Concomitant]
     Active Substance: MELOXICAM

REACTIONS (13)
  - Vomiting [Recovered/Resolved]
  - Migraine [Unknown]
  - Gastrointestinal injury [Unknown]
  - Sacroiliitis [Unknown]
  - Nausea [Recovered/Resolved]
  - Heart rate abnormal [Unknown]
  - Blood pressure fluctuation [Unknown]
  - Drug effect incomplete [Unknown]
  - Headache [Recovered/Resolved]
  - Product use issue [Unknown]
  - Arthralgia [Unknown]
  - Lower respiratory tract infection [Unknown]
  - Weight increased [Not Recovered/Not Resolved]

NARRATIVE: CASE EVENT DATE: 2017
